FAERS Safety Report 21031901 (Version 2)
Quarter: 2022Q3

REPORT INFORMATION
  Report Type: Spontaneous
  Country: JP (occurrence: JP)
  Receive Date: 20220701
  Receipt Date: 20220813
  Transmission Date: 20221026
  Serious: No
  Sender: FDA-Public Use
  Company Number: JP-Atnahs Limited-ATNAHS20220606059

PATIENT
  Age: 89 Year
  Sex: Female

DRUGS (1)
  1. BONVIVA [Suspect]
     Active Substance: IBANDRONATE SODIUM
     Indication: Product used for unknown indication
     Dosage: 100 MG
     Route: 048
     Dates: start: 202204, end: 202205

REACTIONS (1)
  - Limb injury [Unknown]
